FAERS Safety Report 6217080-3 (Version None)
Quarter: 2009Q2

REPORT INFORMATION
  Report Type: 
  Country: None (occurrence: None)
  Receive Date: 20090606
  Receipt Date: 20090525
  Transmission Date: 20091009
  Serious: Yes (Other)
  Sender: FDA-Public Use
  Company Number: JP-PFIZER INC-2009219154

PATIENT
  Age: 78 Year

DRUGS (2)
  1. UNASYN [Suspect]
     Indication: PYREXIA
     Dosage: 6 G, DAILY
     Route: 042
     Dates: start: 20090522, end: 20090525
  2. ZOMETA [Concomitant]
     Indication: HYPERCALCAEMIA OF MALIGNANCY
     Dosage: 4 MG, DAILY
     Route: 042

REACTIONS (3)
  - FLUSHING [None]
  - HYPERSENSITIVITY [None]
  - INJECTION SITE ERYTHEMA [None]
